FAERS Safety Report 11772637 (Version 13)
Quarter: 2016Q2

REPORT INFORMATION
  Report Type: Spontaneous
  Country: JP (occurrence: JP)
  Receive Date: 20151124
  Receipt Date: 20160422
  Transmission Date: 20160815
  Serious: Yes (Death, Hospitalization)
  Sender: FDA-Public Use
  Company Number: JP-B.I. PHARMACEUTICALS,INC./RIDGEFIELD-2015-BI-65168NB

PATIENT
  Age: 75 Year
  Sex: Male
  Weight: 55 kg

DRUGS (6)
  1. ELASPOL [Suspect]
     Active Substance: SIVELESTAT SODIUM
     Indication: IDIOPATHIC PULMONARY FIBROSIS
     Dosage: 4.8 CLI-33
     Route: 042
     Dates: start: 20151116, end: 20151119
  2. OFEV [Suspect]
     Active Substance: NINTEDANIB
     Indication: IDIOPATHIC PULMONARY FIBROSIS
     Dosage: 200 MG
     Route: 048
     Dates: start: 20151021, end: 20151116
  3. BAYASPIRIN [Concomitant]
     Active Substance: ASPIRIN
     Indication: PRODUCT USED FOR UNKNOWN INDICATION
     Route: 048
  4. OFEV [Suspect]
     Active Substance: NINTEDANIB
     Dosage: 300 MG
     Route: 048
     Dates: start: 20151030, end: 20151116
  5. PREDONINE [Suspect]
     Active Substance: PREDNISOLONE\PREDNISOLONE ACETATE\PREDNISOLONE SODIUM SUCCINATE
     Indication: IDIOPATHIC PULMONARY FIBROSIS
     Dosage: 30 MG
     Route: 042
     Dates: start: 20151119, end: 20151120
  6. RECOMODULIN [Suspect]
     Active Substance: THROMBOMODULIN ALFA
     Indication: IDIOPATHIC PULMONARY FIBROSIS
     Route: 042
     Dates: start: 20151116, end: 20151119

REACTIONS (3)
  - Idiopathic pulmonary fibrosis [Fatal]
  - Diffuse alveolar damage [Fatal]
  - Pulmonary alveolar haemorrhage [Fatal]

NARRATIVE: CASE EVENT DATE: 20151116
